FAERS Safety Report 5242554-1 (Version None)
Quarter: 2007Q1

REPORT INFORMATION
  Report Type: 
  Country: None (occurrence: None)
  Receive Date: 20070221
  Receipt Date: 20070209
  Transmission Date: 20070707
  Serious: Yes (Death)
  Sender: FDA-Public Use
  Company Number: GBWYE343926OCT06

PATIENT
  Sex: Female

DRUGS (1)
  1. ENBREL [Suspect]
     Indication: PSORIASIS
     Route: 058
     Dates: start: 20060201

REACTIONS (4)
  - CARDIOMYOPATHY [None]
  - RASH [None]
  - SUDDEN CARDIAC DEATH [None]
  - URINARY TRACT INFECTION [None]
